FAERS Safety Report 9559856 (Version 1)
Quarter: 2013Q3

REPORT INFORMATION
  Report Type: Spontaneous
  Country: GR (occurrence: GR)
  Receive Date: 20130927
  Receipt Date: 20130927
  Transmission Date: 20140515
  Serious: Yes (Other)
  Sender: FDA-Public Use
  Company Number: GR-BAYER-2013-113553

PATIENT
  Sex: Male

DRUGS (1)
  1. CIPROXIN [Suspect]
     Dosage: 500 MG, UNK
     Route: 048
     Dates: start: 201309

REACTIONS (5)
  - Bedridden [Not Recovered/Not Resolved]
  - Dizziness [Not Recovered/Not Resolved]
  - Vomiting [Not Recovered/Not Resolved]
  - Asthenia [Not Recovered/Not Resolved]
  - Chills [Not Recovered/Not Resolved]
